FAERS Safety Report 6431468-7 (Version None)
Quarter: 2009Q4

REPORT INFORMATION
  Report Type: 
  Country: None (occurrence: None)
  Receive Date: 20091105
  Receipt Date: 20091105
  Transmission Date: 20100525
  Serious: Yes (Disabling, Other)
  Sender: FDA-Public Use
  Company Number: None

PATIENT
  Age: 52 Year
  Sex: Female
  Weight: 61.2356 kg

DRUGS (1)
  1. CHOLESTYRAMINE [Suspect]
     Dosage: DIRECTIONS ON BOX

REACTIONS (4)
  - FLATULENCE [None]
  - SOCIAL PROBLEM [None]
  - UNEVALUABLE EVENT [None]
  - WEIGHT DECREASED [None]
